FAERS Safety Report 9166985 (Version 2)
Quarter: 2013Q2

REPORT INFORMATION
  Report Type: Spontaneous
  Country: IT (occurrence: IT)
  Receive Date: 20130317
  Receipt Date: 20130404
  Transmission Date: 20140414
  Serious: Yes (Hospitalization)
  Sender: FDA-Public Use
  Company Number: IT-TEVA-391355ISR

PATIENT
  Age: 64 Year
  Sex: Male

DRUGS (15)
  1. ENALAPRIL [Suspect]
     Dosage: 1.25 MILLIGRAM DAILY;
     Route: 048
     Dates: start: 20130109, end: 20130116
  2. LANOXIN [Interacting]
     Dosage: 125 MICROGRAM DAILY;
     Route: 048
     Dates: start: 20130109, end: 20130116
  3. ZAROXOLYN [Interacting]
     Dosage: 1.25 MILLIGRAM DAILY;
     Route: 048
     Dates: start: 20130109, end: 20130116
  4. LASIX [Interacting]
     Dosage: 125 MILLIGRAM DAILY;
     Route: 048
     Dates: start: 20050101, end: 20130116
  5. KCL RETARD [Concomitant]
     Dates: start: 20121108, end: 20130116
  6. CARDIOASPIRIN [Concomitant]
  7. KEPPRA [Concomitant]
  8. XANAX [Concomitant]
     Dosage: 0.75 MG/ML
  9. COUMADIN [Concomitant]
  10. OMEGA POLIENOICI [Concomitant]
  11. ATORVASTATINA CALCIO TRIIDRATO [Concomitant]
  12. BISOPROLOLO EMIFUMARATO [Concomitant]
  13. NITROGLICERINA [Concomitant]
  14. POTASSIO CANRENOATO [Concomitant]
  15. TIOTROPIO BROMURO [Concomitant]

REACTIONS (9)
  - Dyspnoea [Recovered/Resolved]
  - Hypotension [Recovered/Resolved]
  - Hyponatraemia [Recovered/Resolved]
  - Dehydration [Recovered/Resolved]
  - Volume blood decreased [Recovered/Resolved]
  - Haemoconcentration [Recovered/Resolved]
  - Toxicity to various agents [Recovered/Resolved]
  - Cardioactive drug level increased [Recovered/Resolved]
  - Drug interaction [Unknown]
